FAERS Safety Report 14123975 (Version 1)
Quarter: 2017Q4

REPORT INFORMATION
  Report Type: Spontaneous
  Country: US (occurrence: None)
  Receive Date: 20171024
  Receipt Date: 20171024
  Transmission Date: 20180321
  Serious: Yes (Hospitalization)
  Sender: FDA-Public Use
  Company Number: None

PATIENT
  Age: 70 Year
  Sex: Female
  Weight: 50.3 kg

DRUGS (24)
  1. ATENOLOL. [Concomitant]
     Active Substance: ATENOLOL
  2. PSEUDOEPHEDRINE [Concomitant]
     Active Substance: PSEUDOEPHEDRINE
  3. GEMCITABINE [Suspect]
     Active Substance: GEMCITABINE\GEMCITABINE HYDROCHLORIDE
     Indication: PANCREATIC CARCINOMA
     Dosage: FREQUENCY 28 DAY CYCLE
     Route: 042
     Dates: start: 20170405, end: 20170517
  4. OXYCODONE [Concomitant]
     Active Substance: OXYCODONE
  5. ASCORBIC ACID. [Concomitant]
     Active Substance: ASCORBIC ACID
  6. EPA [Concomitant]
  7. ACETAMINOPHEN. [Concomitant]
     Active Substance: ACETAMINOPHEN
  8. LOSARTAN. [Concomitant]
     Active Substance: LOSARTAN
  9. CHOLECALCIFEROL (VITAMIN D3) [Concomitant]
  10. OMEGA-3 ACIDS [Concomitant]
     Active Substance: OMEGA-3 FATTY ACIDS
  11. POTASSIUM [Concomitant]
     Active Substance: POTASSIUM
  12. MAGNESIUM OXIDE. [Concomitant]
     Active Substance: MAGNESIUM OXIDE
  13. NAB-PACLITAXEL [Suspect]
     Active Substance: PACLITAXEL
     Indication: PANCREATIC CARCINOMA
     Dosage: FREQUENCY - 28 DAY CYCLE
     Route: 042
     Dates: start: 20170405, end: 20170517
  14. VITAMIN B COMPLEX [Concomitant]
     Active Substance: CYANOCOBALAMIN\DEXPANTHENOL\NIACINAMIDE\PYRIDOXINE HYDROCHLORIDE\RIBOFLAVIN 5^-PHOSPHATE SODIUM\THIAMINE HYDROCHLORIDE\VITAMIN B COMPLEX
  15. FOLIC ACID. [Concomitant]
     Active Substance: FOLIC ACID
  16. DHA [Concomitant]
     Active Substance: DIETARY SUPPLEMENT
  17. CHEMORADIATION [Suspect]
     Active Substance: UNSPECIFIED INGREDIENT
     Indication: PANCREATIC CARCINOMA
     Dosage: FREQUENCY - 5 DAY/WEEK?ROUTE - EXTERNAL BEAM
     Dates: start: 20170612, end: 20170720
  18. METOCLOPRAMIDE. [Concomitant]
     Active Substance: METOCLOPRAMIDE
  19. LORATADINE. [Concomitant]
     Active Substance: LORATADINE
  20. ZOLPIDEM [Concomitant]
     Active Substance: ZOLPIDEM\ZOLPIDEM TARTRATE
  21. 5-FU [Suspect]
     Active Substance: FLUOROURACIL
     Indication: PANCREATIC CARCINOMA
     Dosage: FREQUENCY - 5 DAY/WEEK?ROUTE IV PUMP
     Route: 042
     Dates: start: 20170612, end: 20170720
  22. VITAMIN A [Concomitant]
     Active Substance: VITAMIN A
  23. FISH OIL [Concomitant]
     Active Substance: FISH OIL
  24. PRAVASTATIN. [Concomitant]
     Active Substance: PRAVASTATIN

REACTIONS (4)
  - Nausea [None]
  - Lymphadenitis [None]
  - Abdominal pain [None]
  - Vomiting [None]

NARRATIVE: CASE EVENT DATE: 20171012
